FAERS Safety Report 12732220 (Version 1)
Quarter: 2016Q3

REPORT INFORMATION
  Report Type: Spontaneous
  Country: US (occurrence: US)
  Receive Date: 20160909
  Receipt Date: 20160909
  Transmission Date: 20161109
  Serious: Yes (Other)
  Sender: FDA-Public Use
  Company Number: None

PATIENT
  Age: 32 Year
  Sex: Female
  Weight: 56.25 kg

DRUGS (1)
  1. MIRENA [Suspect]
     Active Substance: LEVONORGESTREL
     Indication: CONTRACEPTION
     Route: 067
     Dates: end: 20160515

REACTIONS (6)
  - Fungal infection [None]
  - Haemorrhage [None]
  - Pain [None]
  - Burning sensation [None]
  - Pruritus [None]
  - Penile ulceration [None]

NARRATIVE: CASE EVENT DATE: 20160802
